FAERS Safety Report 12240941 (Version 1)
Quarter: 2016Q2

REPORT INFORMATION
  Report Type: Spontaneous
  Country: GB (occurrence: GB)
  Receive Date: 20160406
  Receipt Date: 20160406
  Transmission Date: 20160815
  Serious: Yes (Other)
  Sender: FDA-Public Use
  Company Number: GB-DEXPHARM-20160478

PATIENT
  Age: 61 Year
  Sex: Female
  Weight: 92.52 kg

DRUGS (8)
  1. ATORVASTATIN [Concomitant]
     Active Substance: ATORVASTATIN
  2. CYCLIZINE [Concomitant]
     Active Substance: CYCLIZINE
  3. LEVOTHYROXINE. [Concomitant]
     Active Substance: LEVOTHYROXINE
  4. PARACETAMOL [Concomitant]
     Active Substance: ACETAMINOPHEN
  5. CITALOPRAM [Concomitant]
     Active Substance: CITALOPRAM HYDROBROMIDE
  6. OMEPRAZOLE. [Suspect]
     Active Substance: OMEPRAZOLE
     Indication: ABDOMINAL PAIN
     Dosage: ONE TWICE DAILY FOR 3 DAYS THEN ONE DAILY
     Route: 048
     Dates: start: 20160215, end: 20160218
  7. OMEPRAZOLE. [Suspect]
     Active Substance: OMEPRAZOLE
     Indication: ABDOMINAL PAIN
     Dosage: ONE TWICE DAILY FOR 3 DAYS THEN ONE DAILY
     Route: 048
     Dates: start: 20160219, end: 20160305
  8. PAZOPANIB [Suspect]
     Active Substance: PAZOPANIB

REACTIONS (6)
  - Arthralgia [Not Recovered/Not Resolved]
  - Peripheral swelling [Recovering/Resolving]
  - Joint swelling [Recovering/Resolving]
  - Contusion [Not Recovered/Not Resolved]
  - Liver function test increased [Recovered/Resolved]
  - Dyspnoea [Recovering/Resolving]

NARRATIVE: CASE EVENT DATE: 20160216
